FAERS Safety Report 14685211 (Version 2)
Quarter: 2018Q2

REPORT INFORMATION
  Report Type: Spontaneous
  Country: DE (occurrence: DE)
  Receive Date: 20180327
  Receipt Date: 20180426
  Transmission Date: 20180711
  Serious: Yes (Disabling)
  Sender: FDA-Public Use
  Company Number: DE-B.I. PHARMACEUTICALS,INC./RIDGEFIELD-2018-BI-016390

PATIENT
  Age: 77 Year
  Sex: Male

DRUGS (4)
  1. MACROGOL RATIO [Concomitant]
     Indication: PRODUCT USED FOR UNKNOWN INDICATION
     Dosage: DAILY DOSE: NANOGRAM
     Route: 065
  2. CAPROS [Concomitant]
     Indication: PAIN
     Route: 065
     Dates: start: 20180228
  3. OFEV [Suspect]
     Active Substance: NINTEDANIB
     Indication: PULMONARY FIBROSIS
     Route: 065
     Dates: start: 201701
  4. TAVOR EXPIDET [Concomitant]
     Active Substance: LORAZEPAM
     Indication: SLEEP DISORDER
     Route: 065
     Dates: start: 20180228

REACTIONS (3)
  - Intraocular pressure increased [Recovered/Resolved]
  - Visual impairment [Recovered/Resolved]
  - Miosis [Recovered/Resolved]

NARRATIVE: CASE EVENT DATE: 20180317
